FAERS Safety Report 12462021 (Version 2)
Quarter: 2017Q1

REPORT INFORMATION
  Report Type: Spontaneous
  Country: US (occurrence: US)
  Receive Date: 20160613
  Receipt Date: 20170213
  Transmission Date: 20170428
  Serious: Yes (Hospitalization, Other)
  Sender: FDA-Public Use
  Company Number: US-BAUSCH-BL-2016-013974

PATIENT
  Age: 73 Year
  Sex: Male

DRUGS (2)
  1. MESALAZINE [Suspect]
     Active Substance: MESALAMINE
     Indication: COLITIS ULCERATIVE
     Route: 048
  2. MESALAZINE [Suspect]
     Active Substance: MESALAMINE
     Route: 054

REACTIONS (5)
  - Renal failure [Recovered/Resolved]
  - Neutrophilia [Recovering/Resolving]
  - Transaminases increased [Recovering/Resolving]
  - Liver function test increased [Recovering/Resolving]
  - Acute generalised exanthematous pustulosis [Recovered/Resolved]
